FAERS Safety Report 16669709 (Version 2)
Quarter: 2020Q4

REPORT INFORMATION
  Report Type: Spontaneous
  Country: CH (occurrence: CH)
  Receive Date: 20190805
  Receipt Date: 20201210
  Transmission Date: 20210113
  Serious: Yes (Hospitalization)
  Sender: FDA-Public Use
  Company Number: CH-ELI_LILLY_AND_COMPANY-CH201907015704

PATIENT
  Age: 48 Year
  Sex: Female

DRUGS (11)
  1. ABILIFY [Interacting]
     Active Substance: ARIPIPRAZOLE
     Dosage: 15 UNK, DAILY
     Route: 048
     Dates: start: 20190819
  2. FLUCTINE [Suspect]
     Active Substance: FLUOXETINE HYDROCHLORIDE
     Indication: PRODUCT USED FOR UNKNOWN INDICATION
     Dosage: 20 MG, IN THE MORNING
     Route: 048
     Dates: start: 2016
  3. ABILIFY [Interacting]
     Active Substance: ARIPIPRAZOLE
     Dosage: 20 MG, DAILY
     Route: 048
     Dates: start: 20190716, end: 20190719
  4. ABILIFY [Interacting]
     Active Substance: ARIPIPRAZOLE
     Dosage: 20 MG, DAILY
     Route: 048
     Dates: start: 20190813, end: 20190818
  5. FLUCTINE [Interacting]
     Active Substance: FLUOXETINE HYDROCHLORIDE
     Dosage: 17 DOSAGE FORM, UNK
     Route: 048
     Dates: start: 20190710, end: 20190710
  6. ABILIFY [Interacting]
     Active Substance: ARIPIPRAZOLE
     Indication: PRODUCT USED FOR UNKNOWN INDICATION
     Dosage: 15 MG, BID
     Route: 048
     Dates: start: 2016
  7. ABILIFY [Interacting]
     Active Substance: ARIPIPRAZOLE
     Dosage: 15 MG, TID
     Route: 048
  8. SOLIAN [Concomitant]
     Active Substance: AMISULPRIDE
     Indication: PRODUCT USED FOR UNKNOWN INDICATION
     Dosage: 200 MG, DAILY
     Route: 048
  9. ABILIFY [Interacting]
     Active Substance: ARIPIPRAZOLE
     Dosage: 25 MG, DAILY
     Route: 048
     Dates: start: 20190711, end: 20190716
  10. LITHIOFOR [Concomitant]
     Active Substance: LITHIUM SULFATE
     Indication: PRODUCT USED FOR UNKNOWN INDICATION
     Dosage: 24 MMOL, DAILY
     Route: 065
     Dates: start: 20160802
  11. ABILIFY [Interacting]
     Active Substance: ARIPIPRAZOLE
     Dosage: 20 MG, IN THE MORNING
     Route: 048
     Dates: start: 20160802

REACTIONS (5)
  - Psychiatric decompensation [Unknown]
  - Drug interaction [Not Recovered/Not Resolved]
  - Overdose [Recovered/Resolved]
  - Antipsychotic drug level above therapeutic [Recovering/Resolving]
  - Fall [Unknown]

NARRATIVE: CASE EVENT DATE: 20190710
